FAERS Safety Report 13461356 (Version 1)
Quarter: 2017Q2

REPORT INFORMATION
  Report Type: Spontaneous
  Country: US (occurrence: US)
  Receive Date: 20170419
  Receipt Date: 20170419
  Transmission Date: 20170830
  Serious: Yes (Other)
  Sender: FDA-Public Use
  Company Number: None

PATIENT
  Age: 39 Year
  Sex: Female
  Weight: 66.15 kg

DRUGS (2)
  1. MACROBID [Suspect]
     Active Substance: NITROFURANTOIN\NITROFURANTOIN MONOHYDRATE
     Indication: URINARY TRACT INFECTION
     Dosage: ?          QUANTITY:1 CAPSULE(S);?
     Route: 048
     Dates: start: 20170415, end: 20170418
  2. SYNTHROID [Concomitant]
     Active Substance: LEVOTHYROXINE SODIUM

REACTIONS (10)
  - Pain in extremity [None]
  - Bedridden [None]
  - Asthenia [None]
  - Pyrexia [None]
  - Dyspnoea [None]
  - Fatigue [None]
  - Rash [None]
  - Pain [None]
  - Chills [None]
  - Urticaria [None]

NARRATIVE: CASE EVENT DATE: 20170418
